FAERS Safety Report 19225474 (Version 1)
Quarter: 2021Q2

REPORT INFORMATION
  Report Type: Report from Study
  Country: IL (occurrence: IL)
  Receive Date: 20210505
  Receipt Date: 20210505
  Transmission Date: 20210717
  Serious: Yes (Hospitalization)
  Sender: FDA-Public Use
  Company Number: IL-BAXTER-2021BAX009896

PATIENT
  Age: 42 Year
  Sex: Female
  Weight: 51 kg

DRUGS (7)
  1. ENDOXAN?1G [Suspect]
     Active Substance: CYCLOPHOSPHAMIDE
     Indication: BONE MARROW CONDITIONING REGIMEN
     Dosage: RCHOP
     Route: 065
     Dates: start: 20190421, end: 20190804
  2. ENDOXAN?1G [Suspect]
     Active Substance: CYCLOPHOSPHAMIDE
     Indication: CHEMOTHERAPY
     Dosage: DOSE: 500 (UNITS NOT REPORTED)
     Route: 042
     Dates: start: 20191029, end: 20191031
  3. TAVANIC [Concomitant]
     Active Substance: LEVOFLOXACIN
     Indication: PRODUCT USED FOR UNKNOWN INDICATION
     Route: 065
     Dates: start: 20200224, end: 20200225
  4. ZOVIRAX [Concomitant]
     Active Substance: ACYCLOVIR
     Indication: PRODUCT USED FOR UNKNOWN INDICATION
     Route: 065
     Dates: start: 20191029
  5. MESNA. [Suspect]
     Active Substance: MESNA
     Indication: PROPHYLAXIS
     Dosage: DOSE: 500 (UNITS NOT REPORTED)
     Route: 042
     Dates: start: 20191029, end: 20191030
  6. FLUDARABINE [Suspect]
     Active Substance: FLUDARABINE PHOSPHATE
     Indication: BONE MARROW CONDITIONING REGIMEN
     Dosage: DOSE: 30 (UNITS NOT REPORTED)
     Route: 042
     Dates: start: 20191029, end: 20191031
  7. TAZOCIN [Concomitant]
     Active Substance: PIPERACILLIN SODIUM\TAZOBACTAM SODIUM
     Indication: PRODUCT USED FOR UNKNOWN INDICATION
     Route: 065
     Dates: start: 20200223, end: 20200223

REACTIONS (4)
  - Anal ulcer [Recovered/Resolved with Sequelae]
  - Vulvitis [Recovered/Resolved with Sequelae]
  - Febrile neutropenia [Recovered/Resolved]
  - Vulval ulceration [Recovered/Resolved with Sequelae]

NARRATIVE: CASE EVENT DATE: 20200223
